FAERS Safety Report 4772706-6 (Version None)
Quarter: 2005Q3

REPORT INFORMATION
  Report Type: 
  Country: None (occurrence: None)
  Receive Date: 20050915
  Receipt Date: 20050915
  Transmission Date: 20060218
  Serious: Yes (Hospitalization)
  Sender: FDA-Public Use
  Company Number: None

PATIENT
  Age: 87 Year
  Sex: Female
  Weight: 31.2982 kg

DRUGS (4)
  1. MIDAZOLAM [Suspect]
     Indication: SEDATION
     Dosage: 2 MG IV OTO
     Route: 042
     Dates: start: 20050608
  2. FENTANYL [Suspect]
     Indication: SEDATION
     Dosage: 150 MG IV OTO
     Route: 042
     Dates: start: 20050608
  3. EVISTA [Concomitant]
  4. HYDRODERM/APAP [Concomitant]

REACTIONS (8)
  - BUNDLE BRANCH BLOCK [None]
  - CARDIAC DISORDER [None]
  - DIZZINESS [None]
  - HYPOTENSION [None]
  - HYPOXIA [None]
  - MYOCARDIAL INFARCTION [None]
  - OXYGEN SATURATION DECREASED [None]
  - TACHYCARDIA [None]
